FAERS Safety Report 7253746-4 (Version None)
Quarter: 2011Q1

REPORT INFORMATION
  Report Type: 
  Country: None (occurrence: None)
  Receive Date: 20110129
  Receipt Date: 20100331
  Transmission Date: 20110831
  Serious: No
  Sender: FDA-Public Use
  Company Number: US-ABBOTT-10P-163-0623736-00

PATIENT
  Sex: Female
  Weight: 74.91 kg

DRUGS (3)
  1. XANAX [Concomitant]
     Indication: DEPRESSION
     Dates: start: 20090101
  2. PROZAC [Concomitant]
     Indication: DEPRESSION
     Dates: start: 20090101
  3. HUMIRA [Suspect]
     Indication: CROHN'S DISEASE
     Route: 058
     Dates: start: 20090501

REACTIONS (4)
  - URTICARIA [None]
  - INJECTION SITE INDURATION [None]
  - INJECTION SITE PAIN [None]
  - INJECTION SITE RASH [None]
